FAERS Safety Report 8942437 (Version 4)
Quarter: 2020Q3

REPORT INFORMATION
  Report Type: Report from Study
  Country: US (occurrence: US)
  Receive Date: 20121204
  Receipt Date: 20131112
  Transmission Date: 20201104
  Serious: Yes (Hospitalization)
  Sender: FDA-Public Use
  Company Number: US-ASTELLAS-2012US011750

PATIENT
  Age: 61 Year
  Sex: Female
  Weight: 60 kg

DRUGS (12)
  1. FLUTICASONE. [Concomitant]
     Active Substance: FLUTICASONE
     Indication: ASTHMA
     Dosage: UNK
     Route: 065
     Dates: start: 20120530
  2. DEXAMETHASONE. [Concomitant]
     Active Substance: DEXAMETHASONE
     Indication: FATIGUE
     Dosage: UNK
     Route: 065
     Dates: start: 20121006
  3. PAROXETINE. [Concomitant]
     Active Substance: PAROXETINE
     Indication: DEPRESSION
     Dosage: UNK
     Route: 065
     Dates: start: 20120530
  4. VALIUM [Concomitant]
     Active Substance: DIAZEPAM
     Indication: INSOMNIA
     Dosage: UNK
     Route: 065
     Dates: start: 20121102, end: 20121109
  5. TRAZODONE [Concomitant]
     Active Substance: TRAZODONE HYDROCHLORIDE
     Indication: INSOMNIA
     Dosage: UNK
     Route: 065
     Dates: start: 20121124
  6. WARFARIN [Concomitant]
     Active Substance: WARFARIN
     Indication: EMBOLISM
     Dosage: UNK
     Route: 065
     Dates: start: 20121102, end: 20121105
  7. OMEPRAZOLE. [Concomitant]
     Active Substance: OMEPRAZOLE
     Indication: GASTROOESOPHAGEAL REFLUX DISEASE
     Dosage: UNK
     Route: 065
     Dates: start: 20120110
  8. FRAGMIN [Concomitant]
     Active Substance: DALTEPARIN SODIUM
     Indication: EMBOLISM
     Dosage: UNK
     Route: 065
     Dates: start: 20121107, end: 20121108
  9. LOVENOX [Concomitant]
     Active Substance: ENOXAPARIN SODIUM
     Indication: EMBOLISM
     Dosage: UNK
     Route: 065
     Dates: start: 20121103, end: 20121113
  10. ONARTUZUMAB. [Suspect]
     Active Substance: ONARTUZUMAB
     Indication: NON-SMALL CELL LUNG CANCER
     Dosage: Q3W
     Route: 042
     Dates: start: 20120926
  11. ERLOTINIB TABLET [Suspect]
     Active Substance: ERLOTINIB
     Indication: NON-SMALL CELL LUNG CANCER
     Dosage: 150 MG, UID/QD
     Route: 048
     Dates: start: 20120926
  12. MEGACE [Concomitant]
     Active Substance: MEGESTROL ACETATE
     Indication: WEIGHT DECREASED
     Dosage: UNK
     Route: 065
     Dates: start: 20121003

REACTIONS (2)
  - Muscular weakness [Recovered/Resolved]
  - Spinal cord compression [Unknown]

NARRATIVE: CASE EVENT DATE: 20121121
